FAERS Safety Report 5356062-0 (Version None)
Quarter: 2007Q2

REPORT INFORMATION
  Report Type: 
  Country: None (occurrence: None)
  Receive Date: 20070524
  Receipt Date: 20060605
  Transmission Date: 20071010
  Serious: Yes (Death)
  Sender: FDA-Public Use
  Company Number: T200600626

PATIENT
  Age: 17 Year
  Sex: Female

DRUGS (2)
  1. METHADOSE [Suspect]
     Route: 048
  2. COCAINE                     (COCAINE) [Suspect]

REACTIONS (1)
  - DEATH [None]
